FAERS Safety Report 14225288 (Version 1)
Quarter: 2017Q4

REPORT INFORMATION
  Report Type: Spontaneous
  Country: NL (occurrence: NL)
  Receive Date: 20171127
  Receipt Date: 20171127
  Transmission Date: 20180321
  Serious: Yes (Hospitalization)
  Sender: FDA-Public Use
  Company Number: NL-ALKABELLO-2017AA003824

PATIENT
  Age: 35 Year
  Sex: Male

DRUGS (1)
  1. GRAZAX [Suspect]
     Active Substance: PHLEUM PRATENSE POLLEN
     Dates: start: 201410, end: 201710

REACTIONS (3)
  - Asthma [Recovered/Resolved]
  - Transient ischaemic attack [Recovered/Resolved with Sequelae]
  - Ischaemic cerebral infarction [Recovered/Resolved]

NARRATIVE: CASE EVENT DATE: 201412
